FAERS Safety Report 21718993 (Version 1)
Quarter: 2022Q4

REPORT INFORMATION
  Report Type: Spontaneous
  Country: US (occurrence: None)
  Receive Date: 20221213
  Receipt Date: 20221213
  Transmission Date: 20230113
  Serious: No
  Sender: FDA-Public Use
  Company Number: 2022A395559

PATIENT

DRUGS (2)
  1. EVUSHELD [Suspect]
     Active Substance: CILGAVIMAB\TIXAGEVIMAB
     Dosage: 150.0MG ONCE/SINGLE ADMINISTRATION
     Route: 030
  2. LEVAQUIN [Concomitant]
     Active Substance: LEVOFLOXACIN
     Indication: Inflammation

REACTIONS (3)
  - Inflammation [Unknown]
  - Incorrect dose administered [Unknown]
  - Suture related complication [Unknown]
